FAERS Safety Report 7126046-0 (Version None)
Quarter: 2010Q4

REPORT INFORMATION
  Report Type: 
  Country: None (occurrence: None)
  Receive Date: 20101129
  Receipt Date: 20101115
  Transmission Date: 20110411
  Serious: Yes (Hospitalization)
  Sender: FDA-Public Use
  Company Number: US-ACTELION-A-US2009-32229

PATIENT

DRUGS (4)
  1. BOSENTAN TABLET 62.5 MG US [Suspect]
     Indication: PULMONARY ARTERIAL HYPERTENSION
     Dosage: 62.5 MG, BID
     Route: 048
     Dates: start: 20100201, end: 20100609
  2. BOSENTAN TABLET 62.5 MG US [Suspect]
     Dosage: 31.25 MG, BID
     Route: 048
     Dates: start: 20100712
  3. BOSENTAN TABLET 62.5 MG US [Suspect]
     Dosage: UNK MG, BID
     Route: 048
     Dates: start: 20091202
  4. BOSENTAN TABLET 62.5 MG US [Suspect]
     Dosage: 31.25 MG, BID
     Route: 048
     Dates: end: 20100131

REACTIONS (7)
  - ASPARTATE AMINOTRANSFERASE INCREASED [None]
  - BLOOD BILIRUBIN INCREASED [None]
  - DEHYDRATION [None]
  - HAEMOGLOBIN DECREASED [None]
  - LIVER FUNCTION TEST ABNORMAL [None]
  - PNEUMONIA [None]
  - SICKLE CELL ANAEMIA WITH CRISIS [None]
